FAERS Safety Report 4364214-1 (Version None)
Quarter: 2004Q2

REPORT INFORMATION
  Report Type: 
  Country: None (occurrence: None)
  Receive Date: 20040519
  Receipt Date: 20040507
  Transmission Date: 20050107
  Serious: Yes (Other)
  Sender: FDA-Public Use
  Company Number: 2004026955

PATIENT
  Age: 64 Year
  Sex: Male

DRUGS (5)
  1. DILANTIN [Suspect]
     Indication: CONVULSION
     Dosage: DAILY, ORAL
     Route: 048
     Dates: start: 20000101
  2. ANAGRELIDE HYDROCHLORIDE [Concomitant]
  3. HYDROXYCARBAMIDE [Concomitant]
  4. ASPIRIN [Concomitant]
  5. FINASTERIDE [Concomitant]

REACTIONS (4)
  - ANTICONVULSANT DRUG LEVEL DECREASED [None]
  - CONVULSION [None]
  - LABORATORY TEST INTERFERENCE [None]
  - PHARMACEUTICAL PRODUCT COMPLAINT [None]
